FAERS Safety Report 5070315-5 (Version None)
Quarter: 2006Q3

REPORT INFORMATION
  Report Type: 
  Country: None (occurrence: None)
  Receive Date: 20060731
  Receipt Date: 20060720
  Transmission Date: 20061208
  Serious: Yes (Hospitalization)
  Sender: FDA-Public Use
  Company Number: 2006-06-1737

PATIENT
  Age: 61 Year
  Sex: Male

DRUGS (8)
  1. REBETOL [Suspect]
     Indication: HEPATITIS C
     Dosage: SEE IMAGE
     Route: 048
     Dates: start: 20041004
  2. INTRON A [Suspect]
     Indication: HEPATITIS C
     Dosage: SEE IMAGE
     Route: 048
     Dates: start: 20041004, end: 20041012
  3. INTRON A [Suspect]
     Indication: HEPATITIS C
     Dosage: SEE IMAGE
     Route: 048
     Dates: end: 20060613
  4. INTRON A [Suspect]
     Indication: HEPATITIS C
     Dosage: SEE IMAGE
     Route: 048
     Dates: start: 20041013
  5. LOSARTAN POTASSIUM [Concomitant]
  6. NORVASC [Concomitant]
  7. NOVORAPID (HUMAN INSULIN) [Concomitant]
  8. NOVOLIN R [Concomitant]

REACTIONS (5)
  - BLOOD GLUCOSE FLUCTUATION [None]
  - CEREBRAL HAEMORRHAGE [None]
  - DYSGEUSIA [None]
  - FIBRIN INCREASED [None]
  - PLATELET COUNT DECREASED [None]
